FAERS Safety Report 8932663 (Version 2)
Quarter: 2013Q1

REPORT INFORMATION
  Report Type: Spontaneous
  Country: US (occurrence: US)
  Receive Date: 20121129
  Receipt Date: 20130116
  Transmission Date: 20140127
  Serious: No
  Sender: FDA-Public Use
  Company Number: US-009507513-1211USA011867

PATIENT
  Sex: Male
  Weight: 100 kg

DRUGS (2)
  1. PEGINTRON [Suspect]
     Indication: HEPATITIS C
     Dosage: 150 MICROGRAMS PER 0.5 MILLITER REDIPEN
     Route: 058
     Dates: start: 2012, end: 201210
  2. RIBASPHERE [Suspect]
     Dosage: 2 DF, BID
     Route: 048

REACTIONS (3)
  - Gingival swelling [Not Recovered/Not Resolved]
  - Alopecia [Not Recovered/Not Resolved]
  - Hair texture abnormal [Not Recovered/Not Resolved]
